FAERS Safety Report 4897311-2 (Version None)
Quarter: 2005Q4

REPORT INFORMATION
  Report Type: 
  Country: None (occurrence: None)
  Receive Date: 20051223
  Receipt Date: 20050916
  Transmission Date: 20060501
  Serious: No
  Sender: FDA-Public Use
  Company Number: 05P-163-0311456-00

PATIENT
  Age: 55 Year
  Sex: Female
  Weight: 61.2356 kg

DRUGS (8)
  1. HUMIRA [Suspect]
     Indication: RHEUMATOID ARTHRITIS
     Dosage: 40 MG, 1 IN 2 WK, SUBCUTANEOUS
     Route: 058
     Dates: start: 20050916
  2. AMITRIPTYLINE HCL [Concomitant]
  3. ACETAZOLAMIDE [Concomitant]
  4. CARBAMAZEPINE [Concomitant]
  5. OXYCOCET [Concomitant]
  6. DIAZEPAM [Concomitant]
  7. AXOTAL [Concomitant]
  8. DOXEPIN HYDROCHLORIDE [Concomitant]

REACTIONS (1)
  - INJECTION SITE IRRITATION [None]
